FAERS Safety Report 11215989 (Version 2)
Quarter: 2015Q3

REPORT INFORMATION
  Report Type: Spontaneous
  Country: CA (occurrence: CA)
  Receive Date: 20150624
  Receipt Date: 20150827
  Transmission Date: 20151125
  Serious: Yes (Disabling, Other)
  Sender: FDA-Public Use
  Company Number: CA-PFIZER INC-2015206192

PATIENT
  Age: 73 Year
  Sex: Female

DRUGS (4)
  1. LYRICA [Suspect]
     Active Substance: PREGABALIN
     Dosage: 25 MG, 1X/DAY
     Route: 048
     Dates: end: 20150615
  2. LYRICA [Suspect]
     Active Substance: PREGABALIN
     Dosage: 25 MG, 2X/DAY
     Route: 048
  3. LYRICA [Suspect]
     Active Substance: PREGABALIN
     Indication: PAIN
     Dosage: 75 MG, UNK
     Route: 048
     Dates: start: 201501
  4. LYRICA [Suspect]
     Active Substance: PREGABALIN
     Indication: TRIGEMINAL NEURALGIA
     Dosage: 75 MG, 2X/DAY
     Route: 048
     Dates: start: 20150217

REACTIONS (8)
  - Drug intolerance [Unknown]
  - Ocular discomfort [Not Recovered/Not Resolved]
  - Eye inflammation [Unknown]
  - Visual acuity reduced [Not Recovered/Not Resolved]
  - Somnolence [Unknown]
  - Dry eye [Not Recovered/Not Resolved]
  - Vision blurred [Unknown]
  - Retinal injury [Not Recovered/Not Resolved]

NARRATIVE: CASE EVENT DATE: 201505
